FAERS Safety Report 6330174-7 (Version None)
Quarter: 2009Q3

REPORT INFORMATION
  Report Type: 
  Country: None (occurrence: None)
  Receive Date: 20090827
  Receipt Date: 20071016
  Transmission Date: 20100115
  Serious: Yes (Hospitalization, Other)
  Sender: FDA-Public Use
  Company Number: US-ASTRAZENECA-2006UW23556

PATIENT
  Age: 323 Month
  Sex: Male
  Weight: 95.3 kg

DRUGS (15)
  1. SEROQUEL [Suspect]
     Indication: BIPOLAR DISORDER
     Route: 048
     Dates: start: 19980530, end: 20060601
  2. SEROQUEL [Suspect]
     Indication: DEPRESSION
     Route: 048
     Dates: start: 19980530, end: 20060601
  3. SEROQUEL [Suspect]
     Indication: INSOMNIA
     Route: 048
     Dates: start: 19980530, end: 20060601
  4. SEROQUEL [Suspect]
     Dosage: 25 MG TABLET DISPENSED
     Route: 048
     Dates: start: 20050410
  5. SEROQUEL [Suspect]
     Dosage: 25 MG TABLET DISPENSED
     Route: 048
     Dates: start: 20050410
  6. SEROQUEL [Suspect]
     Dosage: 25 MG TABLET DISPENSED
     Route: 048
     Dates: start: 20050410
  7. SEROQUEL [Suspect]
     Route: 048
     Dates: start: 20050906
  8. SEROQUEL [Suspect]
     Route: 048
     Dates: start: 20050906
  9. SEROQUEL [Suspect]
     Route: 048
     Dates: start: 20050906
  10. TRICOR [Concomitant]
     Dosage: 67 MG - 201 MG
     Route: 048
     Dates: start: 20001016
  11. AMARYL [Concomitant]
     Route: 048
     Dates: start: 20020804
  12. GLUCOPHAGE XR [Concomitant]
     Dates: start: 20020804
  13. PAXIL [Concomitant]
     Route: 048
     Dates: start: 20020804
  14. INSULIN [Concomitant]
     Dosage: 10 UNITS - 40 UNITS
     Route: 058
     Dates: start: 20020804
  15. ACIPHEX [Concomitant]
     Route: 048
     Dates: start: 20020804

REACTIONS (9)
  - DIABETES MELLITUS [None]
  - HYPERGLYCAEMIA [None]
  - OBESITY [None]
  - PANCREATITIS [None]
  - PANCREATITIS ACUTE [None]
  - SURGERY [None]
  - TYPE 1 DIABETES MELLITUS [None]
  - TYPE 2 DIABETES MELLITUS [None]
  - WEIGHT INCREASED [None]
